FAERS Safety Report 24959342 (Version 1)
Quarter: 2025Q1

REPORT INFORMATION
  Report Type: Spontaneous
  Country: NL (occurrence: NL)
  Receive Date: 20250212
  Receipt Date: 20250212
  Transmission Date: 20250409
  Serious: Yes (Life-Threatening, Hospitalization)
  Sender: TEVA
  Company Number: None

PATIENT
  Age: 91 Year
  Sex: Male
  Weight: 62 kg

DRUGS (2)
  1. ACENOCOUMAROL [Suspect]
     Active Substance: ACENOCOUMAROL
     Indication: Atrial fibrillation
     Route: 048
     Dates: start: 20141201, end: 20241018
  2. CIPROFLOXACIN [Suspect]
     Active Substance: CIPROFLOXACIN
     Indication: Urinary tract infection
     Dosage: 2DD500 MG / BRAND NAME NOT SPECIFIED
     Route: 048
     Dates: start: 20241011

REACTIONS (1)
  - Cutaneous vasculitis [Unknown]
